FAERS Safety Report 11259064 (Version 1)
Quarter: 2015Q2

REPORT INFORMATION
  Report Type: Spontaneous
  Country: US (occurrence: None)
  Receive Date: 20150617
  Receipt Date: 20150617
  Transmission Date: 20150821
  Serious: No
  Sender: FDA-Public Use
  Company Number: 2015TASUS000670

PATIENT
  Age: 74 Year
  Sex: Male

DRUGS (22)
  1. CLOPIDOGREL (CLOPIDOGREL BISULFATE) [Concomitant]
  2. DALIRESP [Concomitant]
     Active Substance: ROFLUMILAST
  3. CARVEDILOL (CARVEDILOL) [Concomitant]
     Active Substance: CARVEDILOL
  4. FOSAMAX [Concomitant]
     Active Substance: ALENDRONATE SODIUM
  5. COMBIVENT (IPRATROPIUM BROMIDE, SALBUTAMOL SULFATE) [Concomitant]
  6. ZITHROMAX [Concomitant]
     Active Substance: AZITHROMYCIN DIHYDRATE
  7. COREG [Concomitant]
     Active Substance: CARVEDILOL
  8. PLAVIX [Concomitant]
     Active Substance: CLOPIDOGREL BISULFATE
  9. LORATADINE (LORATADINE) (LORATADINE) [Concomitant]
     Active Substance: LORATADINE
  10. SYNTHROID [Concomitant]
     Active Substance: LEVOTHYROXINE SODIUM
  11. ZYLOPRIM (ALLOPURINOL) [Concomitant]
  12. NITROSTAT (GLYCERYL TRINITRATE) [Concomitant]
  13. AMITRIPTYLINE HCL (AMITRIPTYLINE HYDROCHLORIDE) [Concomitant]
  14. SYMBICORT [Concomitant]
     Active Substance: BUDESONIDE\FORMOTEROL FUMARATE DIHYDRATE
  15. HETLIOZ [Suspect]
     Active Substance: TASIMELTEON
     Indication: CIRCADIAN RHYTHM SLEEP DISORDER
     Dates: start: 20141028
  16. IBUPROFEN (IBUPROFEN) [Concomitant]
     Active Substance: IBUPROFEN
  17. MIRALAX [Concomitant]
     Active Substance: POLYETHYLENE GLYCOL 3350
  18. SINGULAIR [Concomitant]
     Active Substance: MONTELUKAST SODIUM
  19. MONTELUKAST [Concomitant]
     Active Substance: MONTELUKAST SODIUM
  20. SPIRIVA HANDIHALER (TIOTROPIUM BROMIDE) [Concomitant]
  21. LYRICA [Concomitant]
     Active Substance: PREGABALIN
  22. TRAMADOL HYDROCHLORIDE. [Concomitant]
     Active Substance: TRAMADOL HYDROCHLORIDE

REACTIONS (1)
  - Drug ineffective [None]
